FAERS Safety Report 17803642 (Version 1)
Quarter: 2020Q2

REPORT INFORMATION
  Report Type: Spontaneous
  Country: US (occurrence: US)
  Receive Date: 20200519
  Receipt Date: 20200519
  Transmission Date: 20200714
  Serious: Yes (Other)
  Sender: FDA-Public Use
  Company Number: US-TEVA-2020-US-1236892

PATIENT
  Age: 6 Year
  Sex: Male

DRUGS (9)
  1. METHYLPHENIDATE. [Interacting]
     Active Substance: METHYLPHENIDATE
     Dosage: 45 MILLIGRAM DAILY; FORMULATION: OSMOTIC RELEASE ORAL SYSTEM EXTENDED RELEASE
     Route: 048
  2. GUANFACINE. [Interacting]
     Active Substance: GUANFACINE
     Indication: ATTENTION DEFICIT HYPERACTIVITY DISORDER
     Route: 065
  3. LISDEXAMFETAMINE [Suspect]
     Active Substance: LISDEXAMFETAMINE
     Indication: ATTENTION DEFICIT HYPERACTIVITY DISORDER
     Dosage: 30MG, LATER, ADMINISTERED AT HIGHER DOSE
     Route: 065
  4. DEXTROAMPHET SACCHARAT, AMPHET ASPARTATE, DEXTROAMPHET SULFATE AND AMPHET SULFAT [Suspect]
     Active Substance: AMPHETAMINE ASPARTATE\AMPHETAMINE SULFATE\DEXTROAMPHETAMINE SACCHARATE\DEXTROAMPHETAMINE SULFATE
     Indication: ATTENTION DEFICIT HYPERACTIVITY DISORDER
     Dosage: 20 MILLIGRAM DAILY; FORMULATION: EXTENDED RELEASE
     Route: 065
  5. DEXTROAMPHETAMINE/AMPHETAMINE [Suspect]
     Active Substance: AMPHETAMINE\DEXTROAMPHETAMINE
     Indication: ATTENTION DEFICIT HYPERACTIVITY DISORDER
     Dosage: DOSE UNKNOWN; FORMULATION: IMMEDIATE RELEASE
     Route: 065
  6. DEXTROAMPHETAMINE/AMPHETAMINE [Suspect]
     Active Substance: AMPHETAMINE\DEXTROAMPHETAMINE
     Dosage: 5MG BOOSTER DOSE IN THE AFTERNOON AS NEEDED; FORMULATION: IMMEDIATE RELEASE
     Route: 065
  7. METHYLPHENIDATE. [Interacting]
     Active Substance: METHYLPHENIDATE
     Dosage: FORMULATION: IMMEDIATE RELEASE; BOOSTER DOSE IN THE AFTERNOON
     Route: 048
  8. METHYLPHENIDATE. [Interacting]
     Active Substance: METHYLPHENIDATE
     Indication: ATTENTION DEFICIT HYPERACTIVITY DISORDER
     Dosage: 18 MILLIGRAM DAILY; FORMULATION: OSMOTIC RELEASE ORAL SYSTEM EXTENDED RELEASE
     Route: 048
  9. METHYLPHENIDATE. [Interacting]
     Active Substance: METHYLPHENIDATE
     Dosage: 27 MG
     Route: 048

REACTIONS (11)
  - Impulsive behaviour [Recovering/Resolving]
  - Irritability [Recovering/Resolving]
  - Weight decreased [Recovering/Resolving]
  - Peripheral swelling [Recovered/Resolved]
  - Drug interaction [Recovered/Resolved]
  - Rebound effect [Recovering/Resolving]
  - Sleep disorder [Recovering/Resolving]
  - Psychomotor hyperactivity [Recovering/Resolving]
  - Decreased appetite [Recovering/Resolving]
  - Rash pruritic [Recovered/Resolved]
  - Drug ineffective [Unknown]
